FAERS Safety Report 11003121 (Version 7)
Quarter: 2016Q1

REPORT INFORMATION
  Report Type: Spontaneous
  Country: CA (occurrence: CA)
  Receive Date: 20150409
  Receipt Date: 20160323
  Transmission Date: 20160525
  Serious: Yes (Hospitalization, Other)
  Sender: FDA-Public Use
  Company Number: CA-ROCHE-1520466

PATIENT
  Age: 22 Year
  Sex: Female

DRUGS (12)
  1. QVAR [Concomitant]
     Active Substance: BECLOMETHASONE DIPROPIONATE
  2. VENTOLIN [Concomitant]
     Active Substance: ALBUTEROL SULFATE
  3. ACYCLOVIR. [Concomitant]
     Active Substance: ACYCLOVIR
  4. XOLAIR [Suspect]
     Active Substance: OMALIZUMAB
     Indication: ASTHMA
     Route: 058
     Dates: start: 20140723
  5. CETIRIZINE [Concomitant]
     Active Substance: CETIRIZINE HYDROCHLORIDE
  6. XOLAIR [Suspect]
     Active Substance: OMALIZUMAB
     Route: 058
     Dates: start: 20151013
  7. SYMBICORT [Concomitant]
     Active Substance: BUDESONIDE\FORMOTEROL FUMARATE DIHYDRATE
  8. ZANTAC [Concomitant]
     Active Substance: RANITIDINE HYDROCHLORIDE
  9. XOLAIR [Suspect]
     Active Substance: OMALIZUMAB
     Route: 058
     Dates: start: 20150120
  10. XOLAIR [Suspect]
     Active Substance: OMALIZUMAB
     Route: 058
     Dates: start: 20151026
  11. XOLAIR [Suspect]
     Active Substance: OMALIZUMAB
     Route: 058
     Dates: start: 20160314
  12. ZADITEN [Concomitant]
     Active Substance: KETOTIFEN FUMARATE

REACTIONS (17)
  - Maternal exposure timing unspecified [Unknown]
  - Vomiting [Unknown]
  - Nausea [Unknown]
  - Haematochezia [Recovered/Resolved]
  - Bronchitis [Unknown]
  - Tachycardia [Unknown]
  - Hot flush [Unknown]
  - Decreased appetite [Unknown]
  - Abdominal distension [Unknown]
  - Blood pressure decreased [Unknown]
  - Palpitations [Unknown]
  - Asthenia [Unknown]
  - Gastroenteritis viral [Recovered/Resolved]
  - Myalgia [Unknown]
  - Nasopharyngitis [Unknown]
  - Productive cough [Unknown]
  - Haematemesis [Recovered/Resolved]

NARRATIVE: CASE EVENT DATE: 20141227
